FAERS Safety Report 10746080 (Version 1)
Quarter: 2015Q1

REPORT INFORMATION
  Report Type: Spontaneous
  Country: US (occurrence: US)
  Receive Date: 20150128
  Receipt Date: 20150128
  Transmission Date: 20150721
  Serious: Yes (Death, Other)
  Sender: FDA-Public Use
  Company Number: US-BAYER-2015-008459

PATIENT
  Age: 22 Year
  Sex: Female

DRUGS (5)
  1. SERTRALINE [Suspect]
     Active Substance: SERTRALINE HYDROCHLORIDE
  2. DIPHENHYDRAMINE HYDROCHLORIDE. [Suspect]
     Active Substance: DIPHENHYDRAMINE HYDROCHLORIDE
  3. QUETIAPINE [Suspect]
     Active Substance: QUETIAPINE
  4. CITALOPRAM [Suspect]
     Active Substance: CITALOPRAM HYDROBROMIDE
  5. HYDROXYZINE [Suspect]
     Active Substance: HYDROXYZINE\HYDROXYZINE HYDROCHLORIDE

REACTIONS (9)
  - Toxicity to various agents [Fatal]
  - Depressed level of consciousness [None]
  - Electrocardiogram QRS complex prolonged [None]
  - Respiratory depression [None]
  - Metabolic acidosis [None]
  - Hypotension [None]
  - Rhabdomyolysis [None]
  - Coma [None]
  - Bradycardia [None]
